FAERS Safety Report 11138503 (Version 2)
Quarter: 2015Q2

REPORT INFORMATION
  Report Type: Report from Study
  Country: CA (occurrence: CA)
  Receive Date: 20150527
  Receipt Date: 20150608
  Transmission Date: 20150821
  Serious: Yes (Hospitalization, Other)
  Sender: FDA-Public Use
  Company Number: CA-ROCHE-1564124

PATIENT
  Age: 68 Year
  Sex: Male

DRUGS (17)
  1. RITUXAN [Suspect]
     Active Substance: RITUXIMAB
     Indication: CHRONIC LYMPHOCYTIC LEUKAEMIA
     Route: 042
     Dates: start: 20150319, end: 20150422
  2. DIPHENHYDRAMINE [Concomitant]
     Active Substance: DIPHENHYDRAMINE
     Indication: PREMEDICATION
     Route: 048
     Dates: start: 20150319
  3. ACETAMINOPHEN. [Concomitant]
     Active Substance: ACETAMINOPHEN
     Indication: PREMEDICATION
     Route: 048
     Dates: start: 20150319
  4. CYCLOPHOSPHAMIDE. [Concomitant]
     Active Substance: CYCLOPHOSPHAMIDE
  5. ACETYLSALICYLIC ACID (ASA) [Concomitant]
  6. SAXAGLIPTIN [Concomitant]
     Active Substance: SAXAGLIPTIN
  7. NORVASC [Concomitant]
     Active Substance: AMLODIPINE BESYLATE
  8. METHYLPREDNISOLONE. [Concomitant]
     Active Substance: METHYLPREDNISOLONE
     Indication: PREMEDICATION
     Route: 042
     Dates: start: 20150319
  9. FINASTERIDE. [Concomitant]
     Active Substance: FINASTERIDE
  10. DIAMICRON [Concomitant]
     Active Substance: GLICLAZIDE
  11. LIPITOR [Concomitant]
     Active Substance: ATORVASTATIN CALCIUM
  12. XATRAL [Concomitant]
     Active Substance: ALFUZOSIN
  13. VINCRISTINE [Concomitant]
     Active Substance: VINCRISTINE
  14. RAMIPRIL. [Concomitant]
     Active Substance: RAMIPRIL
  15. FERAMAX [Concomitant]
     Active Substance: IRON\POLYSACCHARIDES
  16. BENDAMUSTINE [Suspect]
     Active Substance: BENDAMUSTINE
     Indication: PRODUCT USED FOR UNKNOWN INDICATION
     Route: 065
     Dates: end: 2015
  17. ALTACE [Concomitant]
     Active Substance: RAMIPRIL

REACTIONS (8)
  - Haemoglobin decreased [Not Recovered/Not Resolved]
  - Nasopharyngitis [Unknown]
  - Pneumonia [Unknown]
  - Infusion related reaction [Unknown]
  - Blood pressure increased [Unknown]
  - Pneumonitis [Unknown]
  - Pulmonary congestion [Unknown]
  - Haemolytic anaemia [Unknown]

NARRATIVE: CASE EVENT DATE: 20150416
